FAERS Safety Report 16137449 (Version 1)
Quarter: 2019Q2

REPORT INFORMATION
  Report Type: Spontaneous
  Country: IT (occurrence: IT)
  Receive Date: 20190401
  Receipt Date: 20190401
  Transmission Date: 20190711
  Serious: Yes (Hospitalization, Other)
  Sender: FDA-Public Use
  Company Number: IT-AUROBINDO-AUR-APL-2018-005903

PATIENT

DRUGS (6)
  1. TOLVAPTAN [Concomitant]
     Active Substance: TOLVAPTAN
     Indication: INAPPROPRIATE ANTIDIURETIC HORMONE SECRETION
     Dosage: 7.5 MG, UNK
     Route: 065
  2. GRANULOKINE [Concomitant]
     Active Substance: FILGRASTIM
     Indication: PRODUCT USED FOR UNKNOWN INDICATION
     Dosage: UNK ()
     Route: 065
  3. CARBOPLATIN. [Suspect]
     Active Substance: CARBOPLATIN
     Indication: PROSTATE CANCER
     Dosage: 1 DF DAY 1, Q3WK
     Route: 065
  4. ERYTHROPOIETIN [Concomitant]
     Active Substance: ERYTHROPOIETIN
     Indication: PRODUCT USED FOR UNKNOWN INDICATION
     Dosage: UNK ()
     Route: 065
  5. SODIUM CHLORIDE. [Concomitant]
     Active Substance: SODIUM CHLORIDE
     Indication: PRODUCT USED FOR UNKNOWN INDICATION
     Dosage: UNK ()
     Route: 065
  6. ETOPOSIDE. [Suspect]
     Active Substance: ETOPOSIDE
     Indication: PROSTATE CANCER
     Dosage: 100 MG/M2, 100 MG/M2, DAY 1, 2, 3 Q3WK
     Route: 065

REACTIONS (8)
  - Renal impairment [Unknown]
  - Neutropenia [Recovering/Resolving]
  - Hyponatraemia [Recovered/Resolved]
  - Malignant neoplasm progression [Unknown]
  - Anaemia [Recovering/Resolving]
  - Drug intolerance [Recovering/Resolving]
  - Inappropriate antidiuretic hormone secretion [Unknown]
  - Fatigue [Recovering/Resolving]
